FAERS Safety Report 6166318-X (Version None)
Quarter: 2009Q2

REPORT INFORMATION
  Report Type: 
  Country: None (occurrence: None)
  Receive Date: 20090422
  Receipt Date: 20090422
  Transmission Date: 20091009
  Serious: No
  Sender: FDA-Public Use
  Company Number: None

PATIENT
  Sex: Female
  Weight: 98.18 kg

DRUGS (11)
  1. LISINOPRIL [Suspect]
     Dosage: 5MG TABLET 6MG QD ORAL
     Route: 048
     Dates: start: 20090112, end: 20090422
  2. ASPIRIN [Concomitant]
  3. DETROL LA (TOLTERODINE TARTRATE LONG ACTING) [Concomitant]
  4. FISH OIL CAPSULE (OMEGA-3-FATTY ACIDS) [Concomitant]
  5. GLUCOPHAGE [Concomitant]
  6. HYDROCHLOROTHIAZIDE [Concomitant]
  7. LIPITOR [Concomitant]
  8. MULTI-VITAMIN [Concomitant]
  9. OS-CAL (CALCIUM CARBONATE) [Concomitant]
  10. PRILOSEC [Concomitant]
  11. PROVENTIL [Concomitant]

REACTIONS (1)
  - COUGH [None]
